FAERS Safety Report 6304752-5 (Version None)
Quarter: 2009Q3

REPORT INFORMATION
  Report Type: 
  Country: None (occurrence: None)
  Receive Date: 20090811
  Receipt Date: 20090805
  Transmission Date: 20100115
  Serious: Yes (Other)
  Sender: FDA-Public Use
  Company Number: B0587374A

PATIENT
  Sex: Male

DRUGS (2)
  1. AUGMENTIN '125' [Suspect]
     Indication: ERYSIPELAS
     Dosage: 1UNIT SINGLE DOSE
     Route: 048
     Dates: start: 20090730, end: 20090730
  2. DOXYCYCLINE [Suspect]
     Indication: ERYSIPELAS
     Dosage: 1UNIT SINGLE DOSE
     Route: 048
     Dates: start: 20090730, end: 20090730

REACTIONS (3)
  - EYELID OEDEMA [None]
  - OROPHARYNGEAL DISCOMFORT [None]
  - RASH [None]
